FAERS Safety Report 8986304 (Version 1)
Quarter: 2012Q4

REPORT INFORMATION
  Report Type: 
  Country: US (occurrence: US)
  Receive Date: 20121226
  Receipt Date: 20121226
  Transmission Date: 20130627
  Serious: Yes (Other)
  Sender: FDA-Public Use
  Company Number: US-ASTRAZENECA-2012SE93447

PATIENT
  Age: 45 Year
  Sex: Female

DRUGS (1)
  1. QUETIAPINE [Suspect]
     Dosage: LOW DOSE
     Route: 048

REACTIONS (7)
  - Ventricular fibrillation [Unknown]
  - Electrocardiogram QT prolonged [Unknown]
  - Ventricular tachycardia [Recovered/Resolved]
  - Hypomagnesaemia [Unknown]
  - Torsade de pointes [Unknown]
  - Convulsion [Unknown]
  - Mental disorder [Unknown]
